FAERS Safety Report 22210559 (Version 1)
Quarter: 2023Q2

REPORT INFORMATION
  Report Type: Spontaneous
  Country: CN (occurrence: CN)
  Receive Date: 20230414
  Receipt Date: 20230414
  Transmission Date: 20230722
  Serious: Yes (Disabling, Other)
  Sender: FDA-Public Use
  Company Number: None

PATIENT
  Age: 59 Year
  Sex: Female
  Weight: 55 kg

DRUGS (7)
  1. MANNITOL [Suspect]
     Active Substance: MANNITOL
     Indication: Diuretic therapy
     Dosage: 125 ML ONCE DAILY
     Route: 041
     Dates: start: 20230330, end: 20230404
  2. MANNITOL [Suspect]
     Active Substance: MANNITOL
     Indication: Oedema
  3. HEPARIN CALCIUM [Suspect]
     Active Substance: HEPARIN CALCIUM
     Indication: Thrombosis prophylaxis
     Dosage: 0.4 ML ONCE DAILY
     Route: 058
     Dates: start: 20230330, end: 20230409
  4. LOSARTAN POTASSIUM AND HYDROCHLOROTHIAZIDE [Suspect]
     Active Substance: HYDROCHLOROTHIAZIDE\LOSARTAN POTASSIUM
     Indication: Hypertension
     Dosage: 1 TABLET, ONCE A DAY
     Route: 048
     Dates: start: 20230330, end: 20230409
  5. PIOGLITAZONE HYDROCHLORIDE [Suspect]
     Active Substance: PIOGLITAZONE HYDROCHLORIDE
     Indication: Diabetes mellitus
     Dosage: 30 MG ONCE DAILY
     Route: 048
     Dates: start: 20230330, end: 20230409
  6. PIOGLITAZONE HYDROCHLORIDE [Suspect]
     Active Substance: PIOGLITAZONE HYDROCHLORIDE
     Indication: Hypoglycaemia
  7. NABUMETONE [Suspect]
     Active Substance: NABUMETONE
     Indication: Analgesic therapy
     Dosage: 2 CAPSULES ONCE DAILY
     Route: 048
     Dates: start: 20230330, end: 20230404

REACTIONS (1)
  - Acute kidney injury [Recovering/Resolving]

NARRATIVE: CASE EVENT DATE: 20230404
